FAERS Safety Report 4772732-7 (Version None)
Quarter: 2005Q3

REPORT INFORMATION
  Report Type: 
  Country: None (occurrence: None)
  Receive Date: 20050919
  Receipt Date: 20050623
  Transmission Date: 20060218
  Serious: Yes (Hospitalization, Disabling)
  Sender: FDA-Public Use
  Company Number: US-ROCHE-408927

PATIENT
  Age: 23 Year
  Sex: Female
  Weight: 56.7 kg

DRUGS (1)
  1. ACCUTANE [Suspect]
     Indication: ACNE
     Route: 048
     Dates: start: 19970303, end: 19970928

REACTIONS (13)
  - ACTIVITIES OF DAILY LIVING IMPAIRED [None]
  - ANHEDONIA [None]
  - ANXIETY [None]
  - ARTHRITIS [None]
  - BODY DYSMORPHIC DISORDER [None]
  - COLITIS ULCERATIVE [None]
  - CONDITION AGGRAVATED [None]
  - DEPRESSION [None]
  - GASTROINTESTINAL DISORDER [None]
  - GASTROINTESTINAL HAEMORRHAGE [None]
  - HEADACHE [None]
  - INFLAMMATORY BOWEL DISEASE [None]
  - MULTI-ORGAN DISORDER [None]
